FAERS Safety Report 21212794 (Version 2)
Quarter: 2023Q1

REPORT INFORMATION
  Report Type: Spontaneous
  Country: GB (occurrence: None)
  Receive Date: 20220815
  Receipt Date: 20230220
  Transmission Date: 20230417
  Serious: Yes (Hospitalization, Other)
  Sender: FDA-Public Use
  Company Number: 2022A287141

PATIENT
  Sex: Male

DRUGS (12)
  1. LOSEC [Suspect]
     Active Substance: OMEPRAZOLE
     Indication: Product used for unknown indication
     Dosage: 20 MILLIGRAM, QD
  2. ACYCLOVIR [Suspect]
     Active Substance: ACYCLOVIR
     Indication: Product used for unknown indication
  3. CALCIUM CARBONATE\CHOLECALCIFEROL [Suspect]
     Active Substance: CALCIUM CARBONATE\CHOLECALCIFEROL
     Indication: Product used for unknown indication
  4. COTRIMOXAZOLE [Suspect]
     Active Substance: SULFAMETHOXAZOLE\TRIMETHOPRIM
     Indication: Product used for unknown indication
  5. DEXAMETHASONE [Suspect]
     Active Substance: DEXAMETHASONE
     Indication: Product used for unknown indication
     Dosage: ON DAYS 1, 8, 15 AND 22
  6. LOPERAMIDE [Suspect]
     Active Substance: LOPERAMIDE
     Indication: Product used for unknown indication
     Dosage: 2.0MG UNKNOWN
  7. METOCLOPRAMIDE [Suspect]
     Active Substance: METOCLOPRAMIDE
     Indication: Product used for unknown indication
     Dosage: 10 MG, 3 TIMES A DAY (PRN)
  8. NINLARO [Suspect]
     Active Substance: IXAZOMIB CITRATE
     Indication: Product used for unknown indication
     Dosage: 2.3 MILLIGRAM, 1/WEEK
  9. REVLIMID [Suspect]
     Active Substance: LENALIDOMIDE
     Indication: Product used for unknown indication
     Dosage: ON DAYS 1-21
  10. REVLIMID [Suspect]
     Active Substance: LENALIDOMIDE
     Indication: Product used for unknown indication
  11. XARELTO [Suspect]
     Active Substance: RIVAROXABAN
     Indication: Product used for unknown indication
     Dosage: 10 MILLIGRAM, QD
  12. XARELTO [Suspect]
     Active Substance: RIVAROXABAN
     Indication: Product used for unknown indication

REACTIONS (15)
  - Cerebrovascular accident [Unknown]
  - Hypoaesthesia [Unknown]
  - Balance disorder [Unknown]
  - Confusional state [Unknown]
  - Fall [Unknown]
  - Malaise [Unknown]
  - Limb discomfort [Unknown]
  - Gait disturbance [Unknown]
  - Musculoskeletal chest pain [Unknown]
  - Productive cough [Unknown]
  - Feeling cold [Unknown]
  - Chromaturia [Unknown]
  - Pyrexia [Unknown]
  - Decreased appetite [Unknown]
  - Neutrophil count abnormal [Unknown]
